FAERS Safety Report 7833161-2 (Version None)
Quarter: 2011Q4

REPORT INFORMATION
  Report Type: 
  Country: None (occurrence: None)
  Receive Date: 20111024
  Receipt Date: 20111012
  Transmission Date: 20120403
  Serious: No
  Sender: FDA-Public Use
  Company Number: US-JNJFOC-20111005617

PATIENT
  Age: 61 Year
  Sex: Female

DRUGS (3)
  1. TRILEPTAL [Concomitant]
     Route: 065
  2. INVEGA [Suspect]
     Indication: SCHIZOAFFECTIVE DISORDER
     Route: 048
  3. IBUPROFEN [Concomitant]
     Route: 065

REACTIONS (2)
  - HYPONATRAEMIA [None]
  - MYALGIA [None]
